FAERS Safety Report 4491137-X (Version None)
Quarter: 2004Q3

REPORT INFORMATION
  Report Type: 
  Country: None (occurrence: None)
  Receive Date: 20040927
  Receipt Date: 20040730
  Transmission Date: 20050211
  Serious: No
  Sender: FDA-Public Use
  Company Number: USA040774079

PATIENT
  Age: 35 Year
  Sex: Male

DRUGS (1)
  1. STRATTERA [Suspect]
     Dosage: 80 MG DAY
     Dates: start: 20031201

REACTIONS (2)
  - GENITAL DISORDER MALE [None]
  - PERIPHERAL COLDNESS [None]
